FAERS Safety Report 21361160 (Version 2)
Quarter: 2023Q1

REPORT INFORMATION
  Report Type: Spontaneous
  Country: US (occurrence: US)
  Receive Date: 20220921
  Receipt Date: 20230309
  Transmission Date: 20230418
  Serious: No
  Sender: FDA-Public Use
  Company Number: US-BRISTOL-MYERS SQUIBB COMPANY-2022-109416

PATIENT
  Age: 54 Year
  Sex: Female

DRUGS (1)
  1. POMALYST [Suspect]
     Active Substance: POMALIDOMIDE
     Indication: Plasma cell myeloma
     Dosage: FREQUENCY OTHER
     Route: 048
     Dates: start: 202003

REACTIONS (5)
  - Peripheral swelling [Unknown]
  - Vomiting [Unknown]
  - Throat irritation [Unknown]
  - Pharyngeal swelling [Unknown]
  - Cough [Unknown]

NARRATIVE: CASE EVENT DATE: 20220920
